FAERS Safety Report 6581499-1 (Version None)
Quarter: 2010Q1

REPORT INFORMATION
  Report Type: 
  Country: None (occurrence: None)
  Receive Date: 20100215
  Receipt Date: 20100211
  Transmission Date: 20100710
  Serious: Yes (Hospitalization)
  Sender: FDA-Public Use
  Company Number: B0632947A

PATIENT
  Age: 65 Year
  Sex: Male

DRUGS (7)
  1. AUGMENTIN [Suspect]
     Indication: OSTEITIS
     Dosage: 1G FOUR TIMES PER DAY
     Route: 065
     Dates: start: 20080911, end: 20080919
  2. GENTALLINE [Suspect]
     Indication: OSTEITIS
     Dosage: 220MG PER DAY
     Route: 048
     Dates: start: 20080911, end: 20080919
  3. LOVENOX [Concomitant]
     Route: 058
  4. ZYRTEC [Concomitant]
     Route: 048
     Dates: end: 20080922
  5. OMEPRAZOLE [Concomitant]
     Route: 065
     Dates: end: 20080922
  6. BACTRIM DS [Concomitant]
     Dosage: 2UNIT TWICE PER DAY
     Route: 048
     Dates: start: 20080919, end: 20080922
  7. FLAGYL [Concomitant]
     Dosage: 500MG THREE TIMES PER DAY
     Route: 065
     Dates: start: 20080919, end: 20080922

REACTIONS (5)
  - ALANINE AMINOTRANSFERASE INCREASED [None]
  - ASPARTATE AMINOTRANSFERASE INCREASED [None]
  - GAMMA-GLUTAMYLTRANSFERASE INCREASED [None]
  - HEPATOCELLULAR INJURY [None]
  - LIVER FUNCTION TEST ABNORMAL [None]
